FAERS Safety Report 16646909 (Version 1)
Quarter: 2019Q3

REPORT INFORMATION
  Report Type: Spontaneous
  Country: CL (occurrence: CL)
  Receive Date: 20190730
  Receipt Date: 20190730
  Transmission Date: 20191004
  Serious: Yes (Other)
  Sender: FDA-Public Use
  Company Number: CL-PFIZER INC-2019321755

PATIENT

DRUGS (2)
  1. IBRANCE [Suspect]
     Active Substance: PALBOCICLIB
     Indication: BREAST CANCER
  2. FULVESTRANT. [Concomitant]
     Active Substance: FULVESTRANT
     Indication: BREAST CANCER

REACTIONS (2)
  - Neoplasm progression [Unknown]
  - Bone marrow failure [Unknown]
